FAERS Safety Report 4885889-4 (Version None)
Quarter: 2006Q1

REPORT INFORMATION
  Report Type: 
  Country: None (occurrence: None)
  Receive Date: 20060120
  Receipt Date: 20011112
  Transmission Date: 20060701
  Serious: Yes (Hospitalization)
  Sender: FDA-Public Use
  Company Number: US-ROCHE-301593

PATIENT
  Age: 60 Year
  Sex: Male

DRUGS (13)
  1. DACLIZUMAB [Suspect]
     Route: 042
     Dates: start: 20010424
  2. MYCOPHENOLATE MOFETIL [Suspect]
     Route: 048
     Dates: end: 20011111
  3. TACROLIMUS [Suspect]
     Route: 048
  4. PREDNISONE [Suspect]
     Dosage: 7.5 MG QAM AND 5 MG QPM
     Route: 048
  5. GLYBURIDE [Concomitant]
     Dates: start: 20010425
  6. MAGNESIUM OXIDE [Concomitant]
     Dates: start: 20010424
  7. ZANTAC [Concomitant]
     Dates: start: 20010424
  8. METOPROLOL [Concomitant]
  9. INSULIN [Concomitant]
  10. LISINOPRIL [Concomitant]
  11. ASPIRIN [Concomitant]
     Dates: start: 20010425
  12. FLUVASTATIN [Concomitant]
     Dates: start: 20010518
  13. CITRATE [Concomitant]

REACTIONS (4)
  - LOSS OF CONSCIOUSNESS [None]
  - PHARYNGOLARYNGEAL PAIN [None]
  - PNEUMONIA [None]
  - VENTRICULAR FIBRILLATION [None]
